FAERS Safety Report 15998079 (Version 1)
Quarter: 2019Q1

REPORT INFORMATION
  Report Type: Report from Study
  Country: None (occurrence: GB)
  Receive Date: 20190223
  Receipt Date: 20190223
  Transmission Date: 20190418
  Serious: Yes (Death, Other)
  Sender: FDA-Public Use
  Company Number: GB-ABBVIE-11P-167-0844850-00

PATIENT
  Age: 48 Year
  Sex: Male

DRUGS (2)
  1. HYDROXYCHLOROQUINE [Concomitant]
     Active Substance: HYDROXYCHLOROQUINE
     Indication: PRODUCT USED FOR UNKNOWN INDICATION
     Dates: start: 20040915
  2. HUMIRA [Suspect]
     Active Substance: ADALIMUMAB
     Indication: BEHCET^S SYNDROME
     Route: 058
     Dates: start: 20030215, end: 20030815

REACTIONS (4)
  - Metastases to lung [Unknown]
  - Metastases to liver [Fatal]
  - Rectal cancer metastatic [Fatal]
  - Metastases to spine [Fatal]

NARRATIVE: CASE EVENT DATE: 20100218
